FAERS Safety Report 10641407 (Version 1)
Quarter: 2014Q4

REPORT INFORMATION
  Report Type: Spontaneous
  Country: LT (occurrence: LT)
  Receive Date: 20141209
  Receipt Date: 20141209
  Transmission Date: 20150529
  Serious: Yes (Hospitalization)
  Sender: FDA-Public Use
  Company Number: PHHY2014LT156603

PATIENT
  Age: 65 Year
  Sex: Female

DRUGS (3)
  1. COLD 3 [Suspect]
     Active Substance: ACETAMINOPHEN\DEXTROMETHORPHAN\PSEUDOEPHEDRINE
     Indication: VIRAL INFECTION
     Route: 065
  2. CEDAR [Concomitant]
     Indication: VIRAL INFECTION
     Route: 065
  3. AMOXICILLIN. [Suspect]
     Active Substance: AMOXICILLIN
     Indication: BRONCHITIS VIRAL
     Route: 065

REACTIONS (5)
  - Drug reaction with eosinophilia and systemic symptoms [Unknown]
  - Rash generalised [Unknown]
  - Rash maculo-papular [Unknown]
  - Pruritus [Unknown]
  - Hepatic enzyme increased [Unknown]
